FAERS Safety Report 7745817-0 (Version None)
Quarter: 2011Q3

REPORT INFORMATION
  Report Type: 
  Country: None (occurrence: None)
  Receive Date: 20110825
  Receipt Date: 20110524
  Transmission Date: 20111222
  Serious: No
  Sender: FDA-Public Use
  Company Number: 329574

PATIENT
  Age: 70 Year
  Sex: Female

DRUGS (1)
  1. VICTOZA [Suspect]
     Indication: TYPE 2 DIABETES MELLITUS
     Dosage: 1.2 MG,QD, SUBCUTANEOUS
     Route: 058

REACTIONS (4)
  - CONSTIPATION [None]
  - DRY THROAT [None]
  - PHARYNGEAL OEDEMA [None]
  - NAUSEA [None]
